FAERS Safety Report 9196147 (Version 1)
Quarter: 2013Q1

REPORT INFORMATION
  Report Type: Spontaneous
  Country: US (occurrence: None)
  Receive Date: 20120703
  Receipt Date: 20120703
  Transmission Date: 20140127
  Serious: No
  Sender: FDA-Public Use
  Company Number: PHEH2011US013144

PATIENT
  Age: 58 Year
  Sex: Female

DRUGS (5)
  1. GILENYA  (FTY)CAPSULE,0.5MG [Suspect]
     Route: 048
     Dates: start: 20111110
  2. PROZAC (FLUOXETINE HYDROCHLORIDE) [Concomitant]
  3. BACLOFEN (BACLOFEN) [Concomitant]
  4. MACROBID (INTROFURANTOIN) [Concomitant]
  5. EMPIRA [Concomitant]

REACTIONS (3)
  - Blood pressure decreased [None]
  - Heart rate decreased [None]
  - Headache [None]
